FAERS Safety Report 23820496 (Version 2)
Quarter: 2024Q2

REPORT INFORMATION
  Report Type: Report from Study
  Country: US (occurrence: US)
  Receive Date: 20240506
  Receipt Date: 20240530
  Transmission Date: 20240716
  Serious: No
  Sender: FDA-Public Use
  Company Number: US-ABBVIE-5736742

PATIENT
  Age: 44 Year
  Sex: Female
  Weight: 99.79 kg

DRUGS (6)
  1. RINVOQ [Suspect]
     Active Substance: UPADACITINIB
     Indication: Crohn^s disease
     Dosage: FORM STRENGTH: 45MG?LAST ADMIN DATE:- FEB/MAR 2024
     Route: 048
     Dates: start: 202311, end: 2024
  2. RINVOQ [Suspect]
     Active Substance: UPADACITINIB
     Indication: Crohn^s disease
     Dosage: FORM STRENGTH: 30MG?START DATE TEXT: FEB/MAR 2024
     Route: 048
  3. NORETHINDRONE [Concomitant]
     Active Substance: NORETHINDRONE
     Indication: Menstrual disorder
  4. HERBALS\TURMERIC [Concomitant]
     Active Substance: HERBALS\TURMERIC
     Indication: Supplementation therapy
  5. IRON [Concomitant]
     Active Substance: IRON
     Indication: Mineral supplementation
  6. BROMELAINS [Concomitant]
     Active Substance: BROMELAINS
     Indication: Nutritional supplementation

REACTIONS (4)
  - Erythema [Not Recovered/Not Resolved]
  - Bruxism [Unknown]
  - Toothache [Not Recovered/Not Resolved]
  - Herpes zoster [Not Recovered/Not Resolved]

NARRATIVE: CASE EVENT DATE: 20240401
